FAERS Safety Report 7916154-6 (Version None)
Quarter: 2011Q4

REPORT INFORMATION
  Report Type: 
  Country: None (occurrence: None)
  Receive Date: 20111116
  Receipt Date: 20111109
  Transmission Date: 20120403
  Serious: Yes (Hospitalization)
  Sender: FDA-Public Use
  Company Number: US-BIOGENIDEC-2011BI040426

PATIENT
  Age: 55 Year
  Sex: Female

DRUGS (2)
  1. AVONEX [Suspect]
     Indication: MULTIPLE SCLEROSIS
     Route: 030
     Dates: start: 20110119, end: 20110101
  2. AVONEX [Suspect]
     Route: 030
     Dates: start: 20080130, end: 20100809

REACTIONS (2)
  - NEPHROLITHIASIS [None]
  - MULTIPLE SCLEROSIS RELAPSE [None]
